FAERS Safety Report 8958787 (Version 3)
Quarter: 2012Q4

REPORT INFORMATION
  Report Type: Report from Study
  Country: BR (occurrence: BR)
  Receive Date: 20121211
  Receipt Date: 20121230
  Transmission Date: 20130627
  Serious: Yes (Hospitalization)
  Sender: FDA-Public Use
  Company Number: BR-US-EMD SERONO, INC.-7180736

PATIENT
  Age: 32 Year
  Sex: Male

DRUGS (3)
  1. REBIF [Suspect]
     Indication: RELAPSING-REMITTING MULTIPLE SCLEROSIS
     Dates: start: 20110801, end: 20120430
  2. REBIF [Suspect]
     Dates: start: 20120501
  3. PARACETAMOL [Concomitant]
     Indication: PAIN

REACTIONS (1)
  - Multiple sclerosis relapse [Recovered/Resolved]
